FAERS Safety Report 6282346-8 (Version None)
Quarter: 2009Q3

REPORT INFORMATION
  Report Type: 
  Country: None (occurrence: None)
  Receive Date: 20090724
  Receipt Date: 20090710
  Transmission Date: 20100115
  Serious: Yes (Other)
  Sender: FDA-Public Use
  Company Number: US-RB-018329-09

PATIENT
  Age: 56 Year
  Sex: Female

DRUGS (4)
  1. MUCINEX DM [Suspect]
     Route: 048
     Dates: start: 20090708
  2. DOXEPIN HCL [Concomitant]
     Indication: ANXIETY
  3. XANAX [Concomitant]
  4. ZYPREXA [Concomitant]
     Indication: INSOMNIA

REACTIONS (6)
  - ANXIETY [None]
  - BLOOD PRESSURE INCREASED [None]
  - CONFUSIONAL STATE [None]
  - DIZZINESS [None]
  - DRY MOUTH [None]
  - NAUSEA [None]
